FAERS Safety Report 14109451 (Version 1)
Quarter: 2017Q4

REPORT INFORMATION
  Report Type: Spontaneous
  Country: US (occurrence: US)
  Receive Date: 20171019
  Receipt Date: 20171019
  Transmission Date: 20180321
  Serious: Yes (Other)
  Sender: FDA-Public Use
  Company Number: US-VIFOR (INTERNATIONAL) INC.-VIT-2017-10301

PATIENT
  Age: 76 Year
  Sex: Male

DRUGS (22)
  1. BORIC ACID [Concomitant]
     Active Substance: BORIC ACID
  2. CALCIUM ACETATE. [Concomitant]
     Active Substance: CALCIUM ACETATE
  3. COLECALCIFEROL [Concomitant]
     Active Substance: CHOLECALCIFEROL
  4. VANCOMYCIN HYDROCHLORIDE. [Concomitant]
     Active Substance: VANCOMYCIN HYDROCHLORIDE
  5. MACROGOL [Concomitant]
     Active Substance: POLYETHYLENE GLYCOLS
  6. FLOMAX [Concomitant]
     Active Substance: TAMSULOSIN HYDROCHLORIDE
  7. SENSIPAR [Concomitant]
     Active Substance: CINACALCET HYDROCHLORIDE
  8. FERREX [Concomitant]
     Active Substance: FERRIC POLYSACCHARIDE COMPLEX
  9. SYMBICORT [Concomitant]
     Active Substance: BUDESONIDE\FORMOTEROL FUMARATE DIHYDRATE
  10. SPIRIVA [Concomitant]
     Active Substance: TIOTROPIUM BROMIDE MONOHYDRATE
  11. NEXIUM [Concomitant]
     Active Substance: ESOMEPRAZOLE MAGNESIUM
  12. MIRTAZAPINE. [Concomitant]
     Active Substance: MIRTAZAPINE
  13. MAGNESIUM OXIDE. [Concomitant]
     Active Substance: MAGNESIUM OXIDE
  14. MELATONIN [Concomitant]
     Active Substance: MELATONIN
  15. GLUCOSE~~CEFAZOLIN SODIUM [Concomitant]
  16. BUMETANIDE. [Concomitant]
     Active Substance: BUMETANIDE
  17. PREDNISONE. [Concomitant]
     Active Substance: PREDNISONE
  18. METOPROLOL TARTRATE. [Concomitant]
     Active Substance: METOPROLOL TARTRATE
  19. LIPITOR [Concomitant]
     Active Substance: ATORVASTATIN CALCIUM
  20. VELTASSA [Suspect]
     Active Substance: PATIROMER
     Indication: HYPERKALAEMIA
     Route: 048
     Dates: start: 20170811, end: 2017
  21. SYNTHROID [Concomitant]
     Active Substance: LEVOTHYROXINE SODIUM
  22. SODIUM BICARBONATE. [Concomitant]
     Active Substance: SODIUM BICARBONATE

REACTIONS (1)
  - Surgery [Unknown]

NARRATIVE: CASE EVENT DATE: 20170918
